FAERS Safety Report 5065599-3 (Version None)
Quarter: 2006Q3

REPORT INFORMATION
  Report Type: 
  Country: None (occurrence: None)
  Receive Date: 20060714
  Receipt Date: 20060515
  Transmission Date: 20061208
  Serious: No
  Sender: FDA-Public Use
  Company Number: 2006SP002059

PATIENT
  Age: 35 Year
  Sex: Female
  Weight: 54.4316 kg

DRUGS (1)
  1. LUNESTA [Suspect]
     Indication: POOR QUALITY SLEEP
     Dosage: 2 MG;ORAL
     Route: 048
     Dates: start: 20060513, end: 20060514

REACTIONS (1)
  - PARADOXICAL DRUG REACTION [None]
